FAERS Safety Report 16594504 (Version 1)
Quarter: 2019Q3

REPORT INFORMATION
  Report Type: Spontaneous
  Country: BE (occurrence: BE)
  Receive Date: 20190718
  Receipt Date: 20190718
  Transmission Date: 20191004
  Serious: Yes (Hospitalization, Other)
  Sender: FDA-Public Use
  Company Number: BE-GILEAD-2019-0418666

PATIENT
  Sex: Male
  Weight: 3.7 kg

DRUGS (2)
  1. VIREAD [Suspect]
     Active Substance: TENOFOVIR DISOPROXIL FUMARATE
     Indication: HEPATITIS B
     Dosage: 245 MG, QD
     Route: 064
     Dates: start: 20190506
  2. RANITIDINE. [Concomitant]
     Active Substance: RANITIDINE
     Indication: CAESAREAN SECTION
     Dosage: UNK
     Dates: start: 20190710, end: 20190710

REACTIONS (3)
  - Foetal exposure during pregnancy [Recovered/Resolved]
  - Resuscitation [Recovered/Resolved]
  - Neonatal aspiration [Unknown]
